FAERS Safety Report 7288868-5 (Version None)
Quarter: 2011Q1

REPORT INFORMATION
  Report Type: 
  Country: None (occurrence: None)
  Receive Date: 20110211
  Receipt Date: 20110202
  Transmission Date: 20110831
  Serious: Yes (Other)
  Sender: FDA-Public Use
  Company Number: JP-ASTRAZENECA-2011SE06213

PATIENT
  Age: 54 Year
  Sex: Male

DRUGS (4)
  1. ESTRACYT [Suspect]
     Dosage: DOSE UNKNOWN
     Route: 048
  2. ODYNE [Suspect]
     Dosage: DOSE UNKNOWN
     Route: 048
  3. DIETHYLSTILBESTROL [Suspect]
     Dosage: DOSE UNKNOWN
     Route: 065
  4. CASODEX [Suspect]
     Indication: PROSTATE CANCER
     Route: 048

REACTIONS (1)
  - DESMOID TUMOUR [None]
